FAERS Safety Report 15234690 (Version 1)
Quarter: 2018Q3

REPORT INFORMATION
  Report Type: Report from Study
  Country: IR (occurrence: IR)
  Receive Date: 20180803
  Receipt Date: 20180803
  Transmission Date: 20181010
  Serious: Yes (Death, Life-Threatening, Hospitalization, Other)
  Sender: FDA-Public Use
  Company Number: IR-BION-007334

PATIENT
  Age: 20 Year
  Sex: Male

DRUGS (1)
  1. LIDOCAINE HYDROCHLORIDE. [Suspect]
     Active Substance: LIDOCAINE HYDROCHLORIDE

REACTIONS (5)
  - Suicide attempt [Unknown]
  - Cardiac arrest [Fatal]
  - Metabolic acidosis [Unknown]
  - Hypoxic-ischaemic encephalopathy [Unknown]
  - Status epilepticus [Unknown]
